FAERS Safety Report 26012049 (Version 1)
Quarter: 2025Q4

REPORT INFORMATION
  Report Type: Spontaneous
  Country: US (occurrence: US)
  Receive Date: 20251107
  Receipt Date: 20251107
  Transmission Date: 20260117
  Serious: No
  Sender: FRESENIUS KABI
  Company Number: US-FreseniusKabi-FK202514776

PATIENT
  Age: 59 Year
  Sex: Female

DRUGS (1)
  1. LACTULOSE [Suspect]
     Active Substance: LACTULOSE
     Indication: Constipation
     Dosage: THERAPY START AND END DATE ARE UNKOWN AS WELL AS THE DOSAGE AND FREQUENCY
     Route: 048

REACTIONS (1)
  - Malaise [Unknown]
